FAERS Safety Report 10637948 (Version 7)
Quarter: 2015Q3

REPORT INFORMATION
  Report Type: Report from Study
  Country: US (occurrence: US)
  Receive Date: 20141208
  Receipt Date: 20150729
  Transmission Date: 20151125
  Serious: Yes (Hospitalization)
  Sender: FDA-Public Use
  Company Number: US-MERCK-1308USA004978

PATIENT
  Age: 52 Year
  Sex: Male
  Weight: 95.4 kg

DRUGS (16)
  1. ASPIRIN. [Concomitant]
     Active Substance: ASPIRIN
     Indication: CARDIOVASCULAR EVENT PROPHYLAXIS
     Dosage: 81 ML, QD
     Route: 048
     Dates: start: 20130117, end: 20131105
  2. AMITRIPTYLINE HYDROCHLORIDE. [Concomitant]
     Active Substance: AMITRIPTYLINE HYDROCHLORIDE
     Indication: PROCEDURAL PAIN
     Dosage: 25 MG, QD
     Route: 050
     Dates: start: 20130129
  3. PEMBROLIZUMAB. [Suspect]
     Active Substance: PEMBROLIZUMAB
     Dosage: 10MG/KG, QOW
     Route: 042
     Dates: start: 20130730, end: 20130730
  4. POLYETHYLENE GLYCOL 3350. [Concomitant]
     Active Substance: POLYETHYLENE GLYCOL 3350
     Indication: CONSTIPATION PROPHYLAXIS
     Dosage: 1 PACKET, QD, STRENGTH: 17 PACKET
     Route: 050
     Dates: start: 20130508
  5. FENTANYL. [Concomitant]
     Active Substance: FENTANYL
     Indication: NECK PAIN
     Dosage: TOTAL DAILY DOSE: 100 MICROGRAM; FREQUENCY: OTHER
     Route: 062
     Dates: start: 20130129
  6. PEMBROLIZUMAB. [Suspect]
     Active Substance: PEMBROLIZUMAB
     Indication: HEAD AND NECK CANCER
     Dosage: 10 MG/KG, QOW
     Route: 042
     Dates: start: 20130716, end: 20130716
  7. GABAPENTIN. [Concomitant]
     Active Substance: GABAPENTIN
     Indication: NECK PAIN
     Dosage: 100 MG, TID, FORMULATION: SOLUTION
     Route: 050
     Dates: start: 20130129
  8. ONDANSETRON [Concomitant]
     Active Substance: ONDANSETRON
     Indication: PROPHYLAXIS OF NAUSEA AND VOMITING
     Dosage: TOTAL DAILY DOSE 8 MG, PRN
     Route: 048
     Dates: start: 20130716
  9. MORPHINE [Concomitant]
     Active Substance: MORPHINE
     Indication: PAIN
     Dosage: TOTAL DAILY DOSE 3 ML, PRN
     Route: 048
     Dates: start: 20130716, end: 20140812
  10. MORPHINE [Concomitant]
     Active Substance: MORPHINE
     Indication: PAIN
     Dosage: TOTAL DAILY DOSE 60 ML, PRN
     Route: 048
     Dates: start: 20130129, end: 20131231
  11. PROCHLORPERAZINE. [Concomitant]
     Active Substance: PROCHLORPERAZINE
     Indication: NAUSEA
     Dosage: 10MG, PRN
     Route: 048
     Dates: start: 20130716
  12. HEPARIN [Concomitant]
     Active Substance: HEPARIN SODIUM
     Indication: FLUSHING
     Dosage: 500 UNIT, ONCE
     Route: 042
     Dates: start: 20130730, end: 20130730
  13. ZZZQUIL NIGHTTIME SLEEP-AID [Concomitant]
     Active Substance: DIPHENHYDRAMINE HYDROCHLORIDE
     Indication: SLEEP DISORDER
     Dosage: UNK, PRN
     Route: 048
     Dates: start: 20130110
  14. ZOLPIDEM TARTRATE. [Concomitant]
     Active Substance: ZOLPIDEM TARTRATE
     Indication: SLEEP DISORDER
     Dosage: 5 MG, QD
     Route: 048
     Dates: start: 20130226
  15. PROCHLORPERAZINE. [Concomitant]
     Active Substance: PROCHLORPERAZINE
     Indication: PROPHYLAXIS OF NAUSEA AND VOMITING
     Dosage: TOTAL DAILY DOSE 5 MG, PRN
     Route: 048
     Dates: start: 20130716
  16. PEMBROLIZUMAB. [Suspect]
     Active Substance: PEMBROLIZUMAB
     Dosage: 10MG/KG, QOW
     Route: 042
     Dates: start: 20130813

REACTIONS (2)
  - Constipation [Recovered/Resolved]
  - Face oedema [Recovered/Resolved]

NARRATIVE: CASE EVENT DATE: 20130804
